FAERS Safety Report 6453052-1 (Version None)
Quarter: 2009Q4

REPORT INFORMATION
  Report Type: 
  Country: None (occurrence: None)
  Receive Date: 20091124
  Receipt Date: 20090520
  Transmission Date: 20100525
  Serious: No
  Sender: FDA-Public Use
  Company Number: US-ABBOTT-09P-163-0574695-00

PATIENT
  Sex: Female
  Weight: 74.456 kg

DRUGS (7)
  1. TRICOR [Suspect]
     Indication: BLOOD TRIGLYCERIDES INCREASED
     Route: 048
     Dates: start: 20090515, end: 20090518
  2. METFORMIN HCL [Concomitant]
     Indication: DIABETES MELLITUS
  3. LOVOXYL [Concomitant]
     Indication: DRUG USE FOR UNKNOWN INDICATION
  4. BENICAR [Concomitant]
     Indication: BLOOD PRESSURE
  5. VIT [Concomitant]
     Indication: DRUG USE FOR UNKNOWN INDICATION
  6. CALCITRATE [Concomitant]
     Indication: DRUG USE FOR UNKNOWN INDICATION
  7. ECHINACEA GOLDEN SEAL [Concomitant]
     Indication: DRUG USE FOR UNKNOWN INDICATION

REACTIONS (3)
  - ARTHRALGIA [None]
  - GAIT DISTURBANCE [None]
  - HEADACHE [None]
